FAERS Safety Report 6841403-5 (Version None)
Quarter: 2010Q3

REPORT INFORMATION
  Report Type: 
  Country: None (occurrence: None)
  Receive Date: 20100714
  Receipt Date: 20070703
  Transmission Date: 20110219
  Serious: No
  Sender: FDA-Public Use
  Company Number: US-PFIZER INC-2007056123

PATIENT
  Sex: Female
  Weight: 52.3 kg

DRUGS (2)
  1. CHANTIX [Suspect]
     Indication: SMOKING CESSATION THERAPY
     Dates: start: 20070627
  2. PETIBELLE FILMTABLETTEN [Suspect]
     Indication: CONTRACEPTION
     Dates: start: 20060101

REACTIONS (1)
  - METRORRHAGIA [None]
